FAERS Safety Report 9831560 (Version 1)
Quarter: 2014Q1

REPORT INFORMATION
  Report Type: Spontaneous
  Country: US (occurrence: US)
  Receive Date: 20140121
  Receipt Date: 20140121
  Transmission Date: 20141002
  Serious: Yes (Other)
  Sender: FDA-Public Use
  Company Number: US-SA-2014SA007442

PATIENT
  Age: 53 Year
  Sex: Male

DRUGS (1)
  1. LANTUS [Suspect]
     Indication: TYPE 1 DIABETES MELLITUS
     Dosage: FROM: 5 YEARS AGO DOSE:35 UNIT(S)
     Route: 058

REACTIONS (1)
  - Cerebrovascular accident [Unknown]
